FAERS Safety Report 8882649 (Version 1)
Quarter: 2012Q4

REPORT INFORMATION
  Report Type: 
  Country: GB (occurrence: GB)
  Receive Date: 20121102
  Receipt Date: 20121102
  Transmission Date: 20130627
  Serious: Yes (Hospitalization, Other)
  Sender: FDA-Public Use
  Company Number: PHHY2012GB098316

PATIENT
  Age: 70 Year
  Sex: Male
  Weight: 88.3 kg

DRUGS (12)
  1. WARFARIN SODIUM [Suspect]
     Indication: AORTIC VALVE REPLACEMENT
     Route: 048
     Dates: start: 2003
  2. BETAHISTINE [Suspect]
     Indication: VERTIGO
     Dosage: 32 mg, UNK
     Route: 048
     Dates: start: 2003
  3. BETAHISTINE [Suspect]
     Dosage: 16 mg, TID
     Route: 048
  4. AMLODIPINE [Concomitant]
     Indication: HYPERTENSION
     Dosage: 10 mg, UNK
     Route: 048
     Dates: start: 20050307
  5. DOXAZOSIN [Concomitant]
     Indication: HYPERTENSION
     Dosage: 4 mg, UNK
     Route: 048
     Dates: start: 20031217
  6. LISINOPRIL [Concomitant]
     Indication: HYPERTENSION
     Dosage: 20 mg, UNK
     Route: 048
     Dates: start: 20010228
  7. BENDROFLUMETHIAZIDE [Concomitant]
     Indication: HYPERTENSION
     Dosage: 2.5 mg, UNK
     Route: 048
     Dates: start: 20060821
  8. EZETIMIBE [Concomitant]
     Dosage: 10 mg, UNK
     Dates: start: 20051109
  9. TIOTROPIUM [Concomitant]
     Dosage: 18 ug, UNK
     Dates: start: 20080320
  10. PIOGLITAZONE [Concomitant]
     Dosage: 45 mg, UNK
     Dates: start: 20090115
  11. SITAGLIPTIN [Concomitant]
     Dosage: 100 mg, UNK
     Dates: start: 20111007
  12. VENTOLINE [Concomitant]
     Dosage: 2 DF, BID
     Dates: start: 20090629

REACTIONS (6)
  - Peptic ulcer [Recovered/Resolved]
  - Melaena [Unknown]
  - Type 2 diabetes mellitus [Unknown]
  - Aortic aneurysm [Unknown]
  - Gastrointestinal haemorrhage [Recovered/Resolved]
  - Medication error [Unknown]
